FAERS Safety Report 19697848 (Version 1)
Quarter: 2021Q3

REPORT INFORMATION
  Report Type: Spontaneous
  Country: US (occurrence: US)
  Receive Date: 20210813
  Receipt Date: 20210813
  Transmission Date: 20211014
  Serious: No
  Sender: FDA-Public Use
  Company Number: US-B.I. PHARMACEUTICALS,INC./RIDGEFIELD-2021-BI-121263

PATIENT

DRUGS (2)
  1. OFEV [Suspect]
     Active Substance: NINTEDANIB
     Indication: PRODUCT USED FOR UNKNOWN INDICATION
     Dosage: 150MG TWICE DAILY
     Route: 065
     Dates: start: 20210512, end: 20210802
  2. OFEV [Suspect]
     Active Substance: NINTEDANIB
     Dosage: 150MG ONCE DAILY
     Route: 065
     Dates: start: 20210802

REACTIONS (2)
  - Diarrhoea [Recovering/Resolving]
  - Therapy change [Not Recovered/Not Resolved]

NARRATIVE: CASE EVENT DATE: 20210802
